FAERS Safety Report 9707712 (Version 3)
Quarter: 2014Q1

REPORT INFORMATION
  Report Type: Spontaneous
  Country: IT (occurrence: None)
  Receive Date: 20131121
  Receipt Date: 20140106
  Transmission Date: 20141002
  Serious: Yes (Hospitalization, Other)
  Sender: FDA-Public Use
  Company Number: AUR-APL-2013-09589

PATIENT
  Age: 67 Year
  Sex: Male

DRUGS (6)
  1. CITALOPRAM [Suspect]
     Indication: DEPRESSION
     Route: 048
     Dates: start: 20080101, end: 20131005
  2. TAMSULOSIN [Suspect]
     Indication: PROSTATE CANCER
     Route: 048
     Dates: start: 20080101, end: 20131005
  3. RIVOTRIL (CLONAZEPAM) [Concomitant]
  4. RANIDIL (RANITIDINE HYDROCHLORIDE) [Concomitant]
  5. IDROPLURIVIT (VITAMINS NOS) [Concomitant]
  6. AMIODARONE HYDROCHLORIDE (AMIODARONE HYDROCHLORIDE)? [Concomitant]

REACTIONS (13)
  - Hyponatraemia [None]
  - Cerebrovascular disorder [None]
  - Cerebral ischaemia [None]
  - Anoxia [None]
  - Extrapyramidal disorder [None]
  - Subdural haematoma [None]
  - Iron deficiency anaemia [None]
  - Coma [None]
  - Depression [None]
  - Fall [None]
  - Cystitis [None]
  - Disease recurrence [None]
  - Gait disturbance [None]
